FAERS Safety Report 17153926 (Version 2)
Quarter: 2020Q1

REPORT INFORMATION
  Report Type: Spontaneous
  Country: GB (occurrence: GB)
  Receive Date: 20191213
  Receipt Date: 20200114
  Transmission Date: 20200409
  Serious: Yes (Hospitalization, Other)
  Sender: FDA-Public Use
  Company Number: GB-ARRAY-2019-06936

PATIENT

DRUGS (7)
  1. MEKTOVI [Suspect]
     Active Substance: BINIMETINIB
     Indication: HEPATIC CANCER
     Dosage: UNK UNK, UNKNOWN
     Route: 065
     Dates: start: 201910
  2. BRAFTOVI [Suspect]
     Active Substance: ENCORAFENIB
     Indication: COLORECTAL CANCER METASTATIC
  3. MEKTOVI [Suspect]
     Active Substance: BINIMETINIB
     Dosage: UNK
  4. BRAFTOVI [Suspect]
     Active Substance: ENCORAFENIB
     Indication: HEPATIC CANCER
     Dosage: UNK, UNKNOWN
     Route: 065
     Dates: start: 201910
  5. CETUXIMAB. [Concomitant]
     Active Substance: CETUXIMAB
     Indication: COLORECTAL CANCER METASTATIC
     Dosage: UNK
     Dates: start: 201910
  6. CETUXIMAB. [Concomitant]
     Active Substance: CETUXIMAB
     Indication: HEPATIC CANCER
  7. MEKTOVI [Suspect]
     Active Substance: BINIMETINIB
     Indication: COLORECTAL CANCER METASTATIC
     Dosage: UNK

REACTIONS (4)
  - Portal hypertension [Unknown]
  - Diarrhoea [Unknown]
  - Product use in unapproved indication [Unknown]
  - Fatigue [Unknown]

NARRATIVE: CASE EVENT DATE: 201910
